FAERS Safety Report 5225262-2 (Version None)
Quarter: 2007Q1

REPORT INFORMATION
  Report Type: 
  Country: None (occurrence: None)
  Receive Date: 20070131
  Receipt Date: 20070126
  Transmission Date: 20070707
  Serious: Yes (Hospitalization, Other)
  Sender: FDA-Public Use
  Company Number: 2007UW01643

PATIENT
  Age: 60 Year
  Sex: Male

DRUGS (2)
  1. SEROQUEL [Suspect]
     Dates: start: 20051101
  2. SEROQUEL [Suspect]

REACTIONS (2)
  - COGNITIVE DISORDER [None]
  - TRANSIENT ISCHAEMIC ATTACK [None]
